FAERS Safety Report 4515723-3 (Version None)
Quarter: 2004Q4

REPORT INFORMATION
  Report Type: 
  Country: None (occurrence: None)
  Receive Date: 20041201
  Receipt Date: 20041104
  Transmission Date: 20050328
  Serious: Yes (Death, Life-Threatening, Hospitalization)
  Sender: FDA-Public Use
  Company Number: DE-MERCK-0411DEU00087

PATIENT
  Age: 77 Year
  Sex: Female
  Weight: 70 kg

DRUGS (6)
  1. VIOXX [Suspect]
     Indication: PAIN
     Route: 048
     Dates: start: 20040201, end: 20041005
  2. ZOPICLONE [Concomitant]
     Route: 065
     Dates: start: 20040917
  3. ZOPICLONE [Concomitant]
     Route: 065
     Dates: start: 20040917
  4. QUINAPRIL HYDROCHLORIDE [Concomitant]
     Indication: HYPERTENSION
     Route: 065
  5. OPIPRAMOL HYDROCHLORIDE [Concomitant]
     Indication: DEPRESSION
     Route: 065
     Dates: start: 20040716
  6. ESOMEPRAZOLE MAGNESIUM [Concomitant]
     Indication: GASTRITIS
     Route: 065
     Dates: start: 20040225, end: 20040327

REACTIONS (2)
  - INTESTINAL INFARCTION [None]
  - RENAL FAILURE [None]
